FAERS Safety Report 6165516-9 (Version None)
Quarter: 2009Q2

REPORT INFORMATION
  Report Type: 
  Country: None (occurrence: None)
  Receive Date: 20090423
  Receipt Date: 20090415
  Transmission Date: 20091009
  Serious: Yes (Hospitalization, Other)
  Sender: FDA-Public Use
  Company Number: US-ABBOTT-09P-163-0568398-00

PATIENT
  Age: 6 Year
  Sex: Male
  Weight: 17.025 kg

DRUGS (1)
  1. HUMIRA [Suspect]
     Indication: JUVENILE ARTHRITIS
     Route: 058
     Dates: start: 20080401, end: 20090201

REACTIONS (2)
  - PARAINFLUENZAE VIRUS INFECTION [None]
  - SURGERY [None]
